FAERS Safety Report 10167573 (Version 1)
Quarter: 2014Q2

REPORT INFORMATION
  Report Type: Report from Study
  Country: CA (occurrence: CA)
  Receive Date: 20140512
  Receipt Date: 20140512
  Transmission Date: 20141212
  Serious: Yes (Other)
  Sender: FDA-Public Use
  Company Number: CA-ABBVIE-14P-028-1234253-00

PATIENT
  Sex: Female

DRUGS (2)
  1. HUMIRA [Suspect]
     Indication: RHEUMATOID ARTHRITIS
     Route: 058
     Dates: start: 20110204, end: 201311
  2. HUMIRA [Suspect]
     Route: 058
     Dates: start: 201401

REACTIONS (3)
  - Osteoarthritis [Unknown]
  - Joint injury [Unknown]
  - Arthralgia [Unknown]
